FAERS Safety Report 5078064-4 (Version None)
Quarter: 2006Q3

REPORT INFORMATION
  Report Type: 
  Country: None (occurrence: None)
  Receive Date: 20060811
  Receipt Date: 20060803
  Transmission Date: 20061208
  Serious: Yes (Hospitalization, Other)
  Sender: FDA-Public Use
  Company Number: US-BAYER-200613280BCC

PATIENT
  Age: 78 Year
  Sex: Female
  Weight: 77 kg

DRUGS (8)
  1. ASPIRIN [Suspect]
     Indication: PROPHYLAXIS
     Dosage: TOTAL DAILY DOSE: 325 MG  UNIT DOSE: 325 MG
     Route: 048
     Dates: start: 20050101
  2. ASPIRIN [Suspect]
     Indication: PROPHYLAXIS
     Dosage: TOTAL DAILY DOSE: 81 MG  UNIT DOSE: 81 MG
     Route: 048
     Dates: start: 20030101, end: 20040501
  3. PLAVIX [Concomitant]
  4. TOPROL-XL [Concomitant]
  5. DIGITEK [Concomitant]
  6. NATURE'S WAY FISH OIL [Concomitant]
  7. CENTRUM SILVER [Concomitant]
  8. GLUCOSAMINE CHONDROITIN [Concomitant]

REACTIONS (8)
  - ANAEMIA [None]
  - ARTERIAL OCCLUSIVE DISEASE [None]
  - BLOOD COUNT ABNORMAL [None]
  - HAEMATOCHEZIA [None]
  - HAEMORRHOIDS [None]
  - OPERATIVE HAEMORRHAGE [None]
  - STOMACH DISCOMFORT [None]
  - STREPTOCOCCAL INFECTION [None]
